FAERS Safety Report 6313794-5 (Version None)
Quarter: 2009Q3

REPORT INFORMATION
  Report Type: 
  Country: None (occurrence: None)
  Receive Date: 20090818
  Receipt Date: 20090306
  Transmission Date: 20100115
  Serious: Yes (Other)
  Sender: FDA-Public Use
  Company Number: US-BRISTOL-MYERS SQUIBB COMPANY-14534267

PATIENT
  Age: 18 Year
  Sex: Female
  Weight: 54 kg

DRUGS (6)
  1. REYATAZ [Suspect]
     Indication: HIV INFECTION
  2. NORVIR [Concomitant]
  3. DAPSONE [Concomitant]
  4. IBUPROFEN [Concomitant]
  5. CLINDAMYCIN [Concomitant]
  6. TRUVADA [Concomitant]
     Dosage: TRUVADA RH

REACTIONS (1)
  - BLOOD BILIRUBIN INCREASED [None]
